FAERS Safety Report 20906300 (Version 2)
Quarter: 2022Q2

REPORT INFORMATION
  Report Type: Spontaneous
  Country: US (occurrence: US)
  Receive Date: 20220602
  Receipt Date: 20220606
  Transmission Date: 20220721
  Serious: Yes (Other)
  Sender: FDA-Public Use
  Company Number: US-009507513-2206USA000367

PATIENT
  Age: 60 Year
  Sex: Male

DRUGS (1)
  1. KEYTRUDA [Suspect]
     Active Substance: PEMBROLIZUMAB
     Indication: Chronic lymphocytic leukaemia
     Dosage: UNK

REACTIONS (4)
  - Tubulointerstitial nephritis [Recovered/Resolved]
  - Immune-mediated lung disease [Unknown]
  - Immune-mediated dermatitis [Unknown]
  - Product use in unapproved indication [Unknown]
